FAERS Safety Report 9370818 (Version 1)
Quarter: 2013Q2

REPORT INFORMATION
  Report Type: Spontaneous
  Country: US (occurrence: US)
  Receive Date: 20130626
  Receipt Date: 20130626
  Transmission Date: 20140414
  Serious: Yes (Other)
  Sender: FDA-Public Use
  Company Number: US-BAXTER-2013BAX023767

PATIENT
  Age: 77 Year
  Sex: Male

DRUGS (1)
  1. NEXTERONE_AMIODARONE, HYDROCHLORIDE 1.80 MG/ML_SOLUTION FOR INFUSION_B [Suspect]
     Indication: ANGINA PECTORIS
     Dates: start: 199609

REACTIONS (1)
  - Keratopathy [Not Recovered/Not Resolved]
